FAERS Safety Report 13016810 (Version 4)
Quarter: 2019Q3

REPORT INFORMATION
  Report Type: Spontaneous
  Country: US (occurrence: US)
  Receive Date: 20161212
  Receipt Date: 20190821
  Transmission Date: 20191004
  Serious: Yes (Other)
  Sender: FDA-Public Use
  Company Number: US-TEVA-718753ACC

PATIENT
  Sex: Female

DRUGS (2)
  1. PRENATAL VITAMIN [Concomitant]
     Active Substance: VITAMINS
     Dates: start: 20160818
  2. PARAGARD T 380A [Suspect]
     Active Substance: COPPER
     Dates: end: 20160727

REACTIONS (3)
  - Pregnancy on contraceptive [Unknown]
  - Normal newborn [Unknown]
  - Maternal exposure during pregnancy [Unknown]
